FAERS Safety Report 15698273 (Version 1)
Quarter: 2018Q4

REPORT INFORMATION
  Report Type: Spontaneous
  Country: US (occurrence: US)
  Receive Date: 20181206
  Receipt Date: 20181206
  Transmission Date: 20190205
  Serious: Yes (Other)
  Sender: FDA-Public Use
  Company Number: None

PATIENT
  Age: 68 Year
  Weight: 67.5 kg

DRUGS (3)
  1. MULTIVITIMINS [Concomitant]
     Active Substance: VITAMINS
  2. LEVAQUIN [Suspect]
     Active Substance: LEVOFLOXACIN
     Indication: ANIMAL BITE
     Dosage: ?          QUANTITY:7 TABLET(S);?
     Route: 048
     Dates: start: 20181202, end: 20181206
  3. CLINDAMYCIN. [Concomitant]
     Active Substance: CLINDAMYCIN

REACTIONS (1)
  - Tendon pain [None]

NARRATIVE: CASE EVENT DATE: 20181202
